FAERS Safety Report 7206235-7 (Version None)
Quarter: 2011Q1

REPORT INFORMATION
  Report Type: 
  Country: None (occurrence: None)
  Receive Date: 20110103
  Receipt Date: 20101224
  Transmission Date: 20110831
  Serious: Yes (Other)
  Sender: FDA-Public Use
  Company Number: NL-BAXTER-2010BH030931

PATIENT
  Age: 60 Year
  Sex: Female

DRUGS (22)
  1. GAMMAGARD LIQUID [Suspect]
     Route: 042
     Dates: start: 20100413
  2. GAMMAGARD LIQUID [Suspect]
     Route: 042
     Dates: start: 20101223, end: 20101223
  3. OMEPRAZOLE [Concomitant]
  4. NASONEX [Concomitant]
  5. METAMUCIL-2 [Concomitant]
  6. AERIUS [Concomitant]
  7. GAMMAGARD LIQUID [Suspect]
     Indication: DECREASED IMMUNE RESPONSIVENESS
     Route: 042
     Dates: start: 20101209, end: 20101209
  8. DOMPERIDONE [Concomitant]
  9. LIPITOR [Concomitant]
  10. GAMMAGARD LIQUID [Suspect]
     Route: 042
     Dates: start: 20101209, end: 20101209
  11. TIOTROPIUM [Concomitant]
  12. AMITRIPTYLINE [Concomitant]
  13. DYDROGESTERONE TAB [Concomitant]
  14. CINNARIZINE [Concomitant]
  15. FORADIL [Concomitant]
  16. QVAR 40 [Concomitant]
  17. GAMMAGARD LIQUID [Suspect]
     Route: 042
     Dates: start: 20101223, end: 20101223
  18. BUMETANIDE [Concomitant]
  19. FLUCONAZOLE [Concomitant]
  20. ESTRADIOL [Concomitant]
  21. SOTALOL HCL [Concomitant]
  22. RANITIDINE [Concomitant]

REACTIONS (2)
  - BRONCHITIS [None]
  - PYREXIA [None]
